FAERS Safety Report 23683071 (Version 1)
Quarter: 2024Q1

REPORT INFORMATION
  Report Type: Spontaneous
  Country: ES (occurrence: ES)
  Receive Date: 20240328
  Receipt Date: 20240328
  Transmission Date: 20240410
  Serious: Yes (Other)
  Sender: FDA-Public Use
  Company Number: ES-AMGEN-ESPSP2024060415

PATIENT

DRUGS (39)
  1. BEVACIZUMAB [Suspect]
     Active Substance: BEVACIZUMAB
     Indication: Uterine cancer
     Dosage: UNK
     Route: 065
  2. BEVACIZUMAB [Suspect]
     Active Substance: BEVACIZUMAB
     Indication: Ovarian cancer
  3. BEVACIZUMAB [Suspect]
     Active Substance: BEVACIZUMAB
     Indication: Cervix carcinoma
  4. CARBOPLATIN [Concomitant]
     Active Substance: CARBOPLATIN
     Indication: Uterine cancer
     Dosage: UNK
     Route: 065
  5. CARBOPLATIN [Concomitant]
     Active Substance: CARBOPLATIN
     Indication: Ovarian cancer
  6. CARBOPLATIN [Concomitant]
     Active Substance: CARBOPLATIN
     Indication: Cervix carcinoma
  7. PACLITAXEL [Concomitant]
     Active Substance: PACLITAXEL
     Indication: Uterine cancer
     Dosage: UNK
     Route: 065
  8. PACLITAXEL [Concomitant]
     Active Substance: PACLITAXEL
     Indication: Ovarian cancer
  9. PACLITAXEL [Concomitant]
     Active Substance: PACLITAXEL
     Indication: Cervix carcinoma
  10. EPIRUBICIN [Concomitant]
     Active Substance: EPIRUBICIN
     Indication: Uterine cancer
     Dosage: UNK
     Route: 065
  11. EPIRUBICIN [Concomitant]
     Active Substance: EPIRUBICIN
     Indication: Ovarian cancer
  12. EPIRUBICIN [Concomitant]
     Active Substance: EPIRUBICIN
     Indication: Cervix carcinoma
  13. DOXORUBICIN [Concomitant]
     Active Substance: DOXORUBICIN
     Indication: Uterine cancer
     Dosage: UNK
     Route: 065
  14. DOXORUBICIN [Concomitant]
     Active Substance: DOXORUBICIN
     Indication: Ovarian cancer
  15. DOXORUBICIN [Concomitant]
     Active Substance: DOXORUBICIN
     Indication: Cervix carcinoma
  16. DACARBAZINE [Concomitant]
     Active Substance: DACARBAZINE
     Indication: Uterine cancer
     Dosage: UNK
     Route: 065
  17. DACARBAZINE [Concomitant]
     Active Substance: DACARBAZINE
     Indication: Ovarian cancer
  18. DACARBAZINE [Concomitant]
     Active Substance: DACARBAZINE
     Indication: Cervix carcinoma
  19. ETOPOSIDE [Concomitant]
     Active Substance: ETOPOSIDE
     Indication: Uterine cancer
     Dosage: UNK
     Route: 065
  20. ETOPOSIDE [Concomitant]
     Active Substance: ETOPOSIDE
     Indication: Ovarian cancer
  21. ETOPOSIDE [Concomitant]
     Active Substance: ETOPOSIDE
     Indication: Cervix carcinoma
  22. METHOTREXATE [Concomitant]
     Active Substance: METHOTREXATE
     Indication: Uterine cancer
     Dosage: UNK
     Route: 065
  23. METHOTREXATE [Concomitant]
     Active Substance: METHOTREXATE
     Indication: Ovarian cancer
  24. METHOTREXATE [Concomitant]
     Active Substance: METHOTREXATE
     Indication: Cervix carcinoma
  25. TRABECTEDIN [Concomitant]
     Active Substance: TRABECTEDIN
     Indication: Uterine cancer
     Dosage: UNK
     Route: 065
  26. TRABECTEDIN [Concomitant]
     Active Substance: TRABECTEDIN
     Indication: Ovarian cancer
  27. TRABECTEDIN [Concomitant]
     Active Substance: TRABECTEDIN
     Indication: Cervix carcinoma
  28. MEGESTROL [Concomitant]
     Active Substance: MEGESTROL
     Indication: Uterine cancer
     Dosage: UNK
     Route: 065
  29. MEGESTROL [Concomitant]
     Active Substance: MEGESTROL
     Indication: Ovarian cancer
  30. MEGESTROL [Concomitant]
     Active Substance: MEGESTROL
     Indication: Cervix carcinoma
  31. NIRAPARIB [Concomitant]
     Active Substance: NIRAPARIB
     Indication: Uterine cancer
     Dosage: UNK
     Route: 065
  32. NIRAPARIB [Concomitant]
     Active Substance: NIRAPARIB
     Indication: Ovarian cancer
  33. NIRAPARIB [Concomitant]
     Active Substance: NIRAPARIB
     Indication: Cervix carcinoma
  34. DOSTARLIMAB [Concomitant]
     Active Substance: DOSTARLIMAB
     Indication: Uterine cancer
     Dosage: UNK
     Route: 065
  35. DOSTARLIMAB [Concomitant]
     Active Substance: DOSTARLIMAB
     Indication: Ovarian cancer
  36. DOSTARLIMAB [Concomitant]
     Active Substance: DOSTARLIMAB
     Indication: Cervix carcinoma
  37. GEMCITABINE [Concomitant]
     Active Substance: GEMCITABINE
     Indication: Uterine cancer
     Dosage: UNK
     Route: 065
  38. GEMCITABINE [Concomitant]
     Active Substance: GEMCITABINE
     Indication: Ovarian cancer
  39. GEMCITABINE [Concomitant]
     Active Substance: GEMCITABINE
     Indication: Cervix carcinoma

REACTIONS (3)
  - Uterine cancer [Unknown]
  - Ovarian cancer [Unknown]
  - Sarcoma [Unknown]
